FAERS Safety Report 7332292-3 (Version None)
Quarter: 2011Q1

REPORT INFORMATION
  Report Type: 
  Country: None (occurrence: None)
  Receive Date: 20110304
  Receipt Date: 20110302
  Transmission Date: 20110831
  Serious: Yes (Life-Threatening, Hospitalization)
  Sender: FDA-Public Use
  Company Number: FR-ABBOTT-11P-056-0702731-00

PATIENT
  Sex: Male

DRUGS (3)
  1. ROSUVASTATINE [Concomitant]
     Indication: DYSLIPIDAEMIA
     Dates: start: 20050101
  2. TARKA [Suspect]
     Indication: HYPERTENSION
     Dates: start: 20050101, end: 20110101
  3. CLOPIDOGREL [Concomitant]
     Indication: ARTERIAL DISORDER
     Route: 048
     Dates: start: 20050101, end: 20110101

REACTIONS (3)
  - SINOATRIAL BLOCK [None]
  - LOSS OF CONSCIOUSNESS [None]
  - ATRIOVENTRICULAR BLOCK [None]
